FAERS Safety Report 9643878 (Version 1)
Quarter: 2013Q4

REPORT INFORMATION
  Report Type: Spontaneous
  Country: US (occurrence: US)
  Receive Date: 20131024
  Receipt Date: 20131024
  Transmission Date: 20140711
  Serious: Yes (Other)
  Sender: FDA-Public Use
  Company Number: US-PFIZER INC-2013301193

PATIENT
  Age: 59 Year
  Sex: Female

DRUGS (30)
  1. LYRICA [Suspect]
     Dosage: UNK
  2. PREDNISOLONE [Suspect]
     Dosage: UNK
  3. IMURAN [Suspect]
     Dosage: UNK, 2 DAILY
  4. ADVAIR [Concomitant]
     Dosage: FLUTICASONE PROPIONATE 250/ SALMETEROL XINAFOATE 50, 2 PUFFS
  5. ASPIRIN [Concomitant]
     Indication: COAGULOPATHY
     Dosage: UNK, EVERY OTHER DAY
  6. ACIDOPHILUS BIFIDOBACTOR/ FOS [Concomitant]
     Dosage: UNK, 1X/DAY (1 A.M.)
  7. AMLODIPINE/ NORVASC [Concomitant]
     Dosage: 2.5 MG, 2X/DAY (1 A.M AND 1 P.M.)
  8. APAP/ COD [Concomitant]
     Indication: PAIN
     Dosage: PARACETAMOL 300/ CODEINE 30 1-2 TABS PRN
  9. FIORICET [Concomitant]
     Indication: HEADACHE
     Dosage: UNK, PRN
  10. B COMPLEX [Concomitant]
     Dosage: UNK, DAILY
  11. CELEXA [Concomitant]
     Dosage: 40 MG 1/2 TAB, 1X/DAY (P.M.)
  12. DEXILANT [Concomitant]
     Dosage: 60 MG, 1X/DAY (1 A.M.)
  13. GABAPENTIN [Concomitant]
     Dosage: 100 MG, 1X/DAY (A.M.)
  14. GABAPENTIN [Concomitant]
     Dosage: 300 MG, 2X/DAY (1 NOON AND 1 P.M.)
  15. KRILL OIL [Concomitant]
     Dosage: 300 MG, 1X/DAY (A.M.)
  16. METHYLPREDNISOLONE [Concomitant]
     Dosage: 4 MG, 2X/DAY
  17. MIRALAX [Concomitant]
     Dosage: 1 CAP, 1X/DAY (A.M.)
  18. MONTELUKAST/ SINGULAIR [Concomitant]
     Dosage: 10 MG, 1 DAILY
  19. ONDANSETRON [Concomitant]
     Indication: NAUSEA
     Dosage: 4 MG, AS NEEDED (PRN)
  20. PHENYLEPHRINE HYDROCHLORIDE [Concomitant]
     Indication: SINUS DISORDER
     Dosage: 10 MG, AS NEEDED
  21. PRAMIPEXOLE/ MIRAPEX [Concomitant]
     Dosage: 0.25 MG, 1X/DAY (1 P.M.)
  22. PHENERGAN [Concomitant]
     Dosage: 25 MG, AS NEEDED
  23. PROVENTIL [Concomitant]
     Indication: ASTHMA
     Dosage: UNK, PRN
  24. SUMATRIPTAN SUCCINATE [Concomitant]
     Indication: HEADACHE
     Dosage: 50 MG, AS NEEDED
  25. TEMAZEPAM [Concomitant]
     Dosage: 30 MG, 1X/DAY (1 P.M.)
  26. TRAMADOL [Concomitant]
     Dosage: 50 MG, 3 IN A.M. AND THEN PRN
  27. TRIAM/ HCTZ [Concomitant]
     Dosage: 37.5, 1X/DAY (A.M.)
  28. TUMS [Concomitant]
     Dosage: 750, 1X/DAY (1 A.M.)
  29. VITAMIN D [Concomitant]
     Dosage: 50000 IU, WEEKLY (EVERY TUESDAY A.M.)
  30. XOPENEX [Concomitant]
     Dosage: 2 PUFFS, AS NEEDED

REACTIONS (2)
  - Systemic lupus erythematosus [Unknown]
  - Therapeutic response unexpected [Unknown]
